FAERS Safety Report 4516726-5 (Version None)
Quarter: 2004Q4

REPORT INFORMATION
  Report Type: 
  Country: None (occurrence: None)
  Receive Date: 20041005
  Receipt Date: 20040624
  Transmission Date: 20050328
  Serious: Yes (Hospitalization)
  Sender: FDA-Public Use
  Company Number: 237820

PATIENT
  Age: 57 Year
  Sex: Male
  Weight: 87.3 kg

DRUGS (26)
  1. NOVOLOG [Suspect]
     Indication: INSULIN-REQUIRING TYPE II DIABETES MELLITUS
     Dosage: 17 IU, QD, SUBCUTANEOUS
     Route: 058
     Dates: start: 20030101
  2. LANTUS (INSULIN GLARGINES) [Concomitant]
  3. GLUCOPHAGE [Concomitant]
  4. ZYRTEC [Concomitant]
  5. NIASPAN [Concomitant]
  6. CRESTOR/NET/ (ROSUVASTATIN CALCIUM) [Concomitant]
  7. SOMA (CARISOPRODOL) SOLUTION FOR INJECTION [Concomitant]
  8. ZANAFLEX [Concomitant]
  9. ACETYLSALICYLIC ACID SRT [Concomitant]
  10. PLAVIX (CLOPIDREL SULFATE) [Concomitant]
  11. TOPROL-XL [Concomitant]
  12. ALTACE [Concomitant]
  13. PERCOCET [Concomitant]
  14. PERCODAN (ACETYLSALICYLIC ACID, CAFFENINE, HOMATROPINE TEREPHTHALATE, [Concomitant]
  15. VIOXX [Concomitant]
  16. FOLIC ACID [Concomitant]
  17. HYDROXYZINE HCL [Concomitant]
  18. NASAREL (FLUNISOLIDE) [Concomitant]
  19. DOVONEX (CALCIPOTRIOL) [Concomitant]
  20. PULMICORT [Concomitant]
  21. MAXAIR (PIBUTEROL ACETATE) [Concomitant]
  22. ASTELIN (AZELASTINE HDYROCHLORIDE) [Concomitant]
  23. VALIUM [Concomitant]
  24. NIZATIDINE [Concomitant]
  25. ACIPHEX (RABERPRAZOLE SODIUM) [Concomitant]
  26. LOMOTIL [Concomitant]

REACTIONS (2)
  - BLOOD GLUCOSE DECREASED [None]
  - MEDICATION ERROR [None]
